FAERS Safety Report 5356497-6 (Version None)
Quarter: 2007Q2

REPORT INFORMATION
  Report Type: 
  Country: None (occurrence: None)
  Receive Date: 20070530
  Receipt Date: 20070110
  Transmission Date: 20071010
  Serious: Yes (Hospitalization, Other)
  Sender: FDA-Public Use
  Company Number: US200609003725

PATIENT
  Age: 41 Year
  Sex: Female
  Weight: 50.8 kg

DRUGS (2)
  1. ZYPREXA [Suspect]
     Dosage: SEE IMAGE
     Dates: start: 20010207
  2. ZYPREXA [Suspect]
     Dosage: SEE IMAGE
     Dates: start: 20010228

REACTIONS (1)
  - PANCREATITIS [None]
